FAERS Safety Report 20816896 (Version 2)
Quarter: 2022Q2

REPORT INFORMATION
  Report Type: Spontaneous
  Country: US (occurrence: US)
  Receive Date: 20220512
  Receipt Date: 20220627
  Transmission Date: 20220721
  Serious: Yes (Other)
  Sender: FDA-Public Use
  Company Number: US-BRISTOL-MYERS SQUIBB COMPANY-2022-033165

PATIENT
  Age: 64 Year
  Sex: Male

DRUGS (1)
  1. REVLIMID [Suspect]
     Active Substance: LENALIDOMIDE
     Indication: Amyloidosis
     Dosage: REVLIMID FREQUENCY: TAKE 1CAPSULE BY MOUTH ONCE DAILY 21 DAYS ON AND 7 DAYS OFF
     Route: 048
     Dates: start: 20220110

REACTIONS (3)
  - Cataract [Unknown]
  - Vitreous floaters [Not Recovered/Not Resolved]
  - Intentional product use issue [Unknown]
